FAERS Safety Report 13839279 (Version 2)
Quarter: 2017Q3

REPORT INFORMATION
  Report Type: Spontaneous
  Country: PT (occurrence: PT)
  Receive Date: 20170807
  Receipt Date: 20170824
  Transmission Date: 20171127
  Serious: Yes (Hospitalization)
  Sender: FDA-Public Use
  Company Number: PT-AUROBINDO-AUR-APL-2017-38255

PATIENT
  Age: 55 Year
  Sex: Male

DRUGS (1)
  1. MODAFINIL 100MG [Suspect]
     Active Substance: MODAFINIL
     Indication: SCHIZOPHRENIA
     Route: 065

REACTIONS (4)
  - Feeling abnormal [Recovered/Resolved]
  - Condition aggravated [Recovered/Resolved]
  - Product use in unapproved indication [Recovered/Resolved]
  - Persecutory delusion [Recovered/Resolved]
